FAERS Safety Report 6120997 (Version 7)
Quarter: 2012Q4

REPORT INFORMATION
  Report Type: 
  Country: FR (occurrence: FR)
  Receive Date: 20060905
  Receipt Date: 20120925
  Transmission Date: 20130627
  Serious: Yes (Hospitalization, Other)
  Sender: FDA-Public Use
  Company Number: FR-JNJFOC-20060806296

PATIENT
  Age: 50 Year
  Sex: Male
  Weight: 89 kg

DRUGS (10)
  1. REMICADE [Suspect]
     Indication: UVEITIS
     Dosage: 9th infusion
     Route: 042
  2. REMICADE [Suspect]
     Indication: UVEITIS
     Dosage: 4th infusion
     Route: 042
     Dates: start: 20060125
  3. REMICADE [Suspect]
     Indication: UVEITIS
     Dosage: 10th infusion
     Route: 042
     Dates: start: 200602, end: 200602
  4. REMICADE [Suspect]
     Indication: UVEITIS
     Dosage: 9 infusions
     Route: 042
     Dates: start: 20051005
  5. REMICADE [Suspect]
     Indication: ANKYLOSING SPONDYLITIS
     Dosage: 10th infusion
     Route: 042
     Dates: start: 200602, end: 200602
  6. REMICADE [Suspect]
     Indication: ANKYLOSING SPONDYLITIS
     Dosage: 9th infusion
     Route: 042
  7. REMICADE [Suspect]
     Indication: ANKYLOSING SPONDYLITIS
     Dosage: 4th infusion
     Route: 042
     Dates: start: 20060125
  8. REMICADE [Suspect]
     Indication: ANKYLOSING SPONDYLITIS
     Dosage: 9 infusions
     Route: 042
     Dates: start: 20051005
  9. VOLTARENE [Concomitant]
  10. CHIBROCADRON [Concomitant]
     Route: 047

REACTIONS (3)
  - Cutaneous leishmaniasis [Recovered/Resolved]
  - Hepatosplenomegaly [Unknown]
  - Atrophy of globe [Unknown]
